FAERS Safety Report 6833489-9 (Version None)
Quarter: 2010Q3

REPORT INFORMATION
  Report Type: 
  Country: None (occurrence: None)
  Receive Date: 20100712
  Receipt Date: 20070326
  Transmission Date: 20110219
  Serious: No
  Sender: FDA-Public Use
  Company Number: US-PFIZER INC-2007025671

PATIENT
  Sex: Female
  Weight: 44.45 kg

DRUGS (4)
  1. CHANTIX [Suspect]
     Indication: SMOKING CESSATION THERAPY
     Dates: start: 20070310
  2. SOMA [Concomitant]
     Indication: SLEEP DISORDER
  3. XANAX [Concomitant]
  4. ESTRACE [Concomitant]
     Indication: HORMONE REPLACEMENT THERAPY

REACTIONS (5)
  - ABNORMAL DREAMS [None]
  - DECREASED APPETITE [None]
  - FATIGUE [None]
  - MIDDLE INSOMNIA [None]
  - NERVOUSNESS [None]
